FAERS Safety Report 8547921-6 (Version None)
Quarter: 2012Q3

REPORT INFORMATION
  Report Type: 
  Country: None (occurrence: None)
  Receive Date: 20120728
  Receipt Date: 20120719
  Transmission Date: 20120928
  Serious: No
  Sender: FDA-Public Use
  Company Number: US-009507513-1207USA008569

PATIENT

DRUGS (5)
  1. KEPPRA [Concomitant]
  2. IBUPROFEN [Concomitant]
  3. XYZAL [Concomitant]
  4. SAPHRIS [Suspect]
     Dosage: 5 MG, QD
     Route: 060
     Dates: end: 20120719
  5. SAPHRIS [Suspect]
     Indication: BIPOLAR DISORDER
     Dosage: 2.5 MG, QD
     Route: 060
     Dates: end: 20120719

REACTIONS (2)
  - ENURESIS [None]
  - SEDATION [None]
